FAERS Safety Report 20022122 (Version 15)
Quarter: 2024Q2

REPORT INFORMATION
  Report Type: Spontaneous
  Country: BE (occurrence: BE)
  Receive Date: 20211102
  Receipt Date: 20240527
  Transmission Date: 20240715
  Serious: Yes (Hospitalization, Other)
  Sender: FDA-Public Use
  Company Number: BE-CELLTRION INC.-2021BE014623

PATIENT

DRUGS (70)
  1. RITUXIMAB [Suspect]
     Active Substance: RITUXIMAB
     Indication: Diffuse large B-cell lymphoma stage III
     Dosage: 375 MG/M2, SINGLE, CONCENTRATE FOR SOLUTION FOR INJECTION
     Route: 042
     Dates: start: 20210804, end: 20210804
  2. RITUXIMAB [Suspect]
     Active Substance: RITUXIMAB
     Dosage: SINGLE / REGIMEN 1
     Route: 042
     Dates: start: 20210804, end: 20210804
  3. CARBOPLATIN [Suspect]
     Active Substance: CARBOPLATIN
     Indication: Diffuse large B-cell lymphoma stage III
     Dosage: REGIMEN 1
     Route: 042
  4. CARBOPLATIN [Suspect]
     Active Substance: CARBOPLATIN
     Dosage: 375 MG, WEEKLY/ REGIMEN 1
     Route: 042
     Dates: start: 20210804, end: 20210804
  5. CYTARABINE [Suspect]
     Active Substance: CYTARABINE
     Indication: Diffuse large B-cell lymphoma stage III
     Dosage: 2000 MG/M2, EVERY 12 HOURS (Q12H) / REGIMEN 1
     Route: 042
     Dates: start: 20210804, end: 20210804
  6. CYTARABINE [Suspect]
     Active Substance: CYTARABINE
     Dosage: 2000 MG/M2, EVERY 12 HOURS
     Route: 042
     Dates: start: 20210804, end: 20210804
  7. CYTARABINE [Suspect]
     Active Substance: CYTARABINE
     Dosage: 2000 MG/M2, SINGLE / REGIMEN 1
     Route: 042
     Dates: start: 20210805, end: 20210805
  8. CYTARABINE [Suspect]
     Active Substance: CYTARABINE
     Dosage: 2000 MG/M2, EVERY 12 HOURS, REGIMEN 1, Q12H
     Route: 042
     Dates: start: 20210804, end: 20210805
  9. CYTARABINE [Suspect]
     Active Substance: CYTARABINE
     Indication: Diffuse large B-cell lymphoma stage III
     Dosage: 2000 MG/M2, SINGLE
     Route: 042
     Dates: start: 20210805, end: 20210805
  10. CYTARABINE [Suspect]
     Active Substance: CYTARABINE
     Dosage: 2000 MG/M2 Q12H
     Route: 042
     Dates: start: 20210804, end: 20210804
  11. DEXAMETHASONE [Suspect]
     Active Substance: DEXAMETHASONE
     Indication: Diffuse large B-cell lymphoma stage III
     Dosage: 40 MG, 1X/DAY, SOLUTION FOR INJECTION/INFUSION / REGIMEN 1
     Route: 042
     Dates: start: 20210804, end: 20210807
  12. DEXAMETHASONE SODIUM PHOSPHATE [Suspect]
     Active Substance: DEXAMETHASONE PHOSPHATE\DEXAMETHASONE SODIUM PHOSPHATE
     Indication: Diffuse large B-cell lymphoma stage III
     Dosage: 40 MG, 1X/DAY, SOLUTION FOR INJECTION/INFUSION
     Route: 042
     Dates: start: 20210804, end: 20210807
  13. EPCORITAMAB [Suspect]
     Active Substance: EPCORITAMAB
     Indication: Diffuse large B-cell lymphoma stage III
     Dosage: PRIMING DOSE 0.16 MG, SINGLE, DUOBODY-CD3XCD20, REGIMEN1
     Route: 058
     Dates: start: 20210804, end: 20210804
  14. EPCORITAMAB [Suspect]
     Active Substance: EPCORITAMAB
     Dosage: INTERMEDIATE DOSE: 0.8 MG, SINGLE, DUOBODY-CD3XCD20, REGIMEN1
     Route: 058
     Dates: start: 20210811, end: 20210811
  15. EPCORITAMAB [Suspect]
     Active Substance: EPCORITAMAB
     Dosage: FULL DOSE 48 MG, WEEKLY DUOBODY-CD3XCD20, CONCENTRATE FOR SOLUTION FOR INJECTION/ REGIMEN 1
     Route: 058
     Dates: start: 20210819, end: 20210819
  16. OXALIPLATIN [Suspect]
     Active Substance: OXALIPLATIN
     Indication: Diffuse large B-cell lymphoma stage III
     Dosage: UNK
     Route: 042
  17. ACYCLOVIR [Concomitant]
     Active Substance: ACYCLOVIR
     Dosage: UNK
     Dates: start: 20210721
  18. FEBUXOSTAT [Concomitant]
     Active Substance: FEBUXOSTAT
     Dosage: UNK
     Dates: start: 20201004
  19. AMOXICILLIN\CLAVULANATE POTASSIUM [Concomitant]
     Active Substance: AMOXICILLIN\CLAVULANATE POTASSIUM
     Dosage: UNK
     Dates: start: 20210819, end: 20210822
  20. BACTRIM [Concomitant]
     Active Substance: SULFAMETHOXAZOLE\TRIMETHOPRIM
     Dosage: UNK
     Dates: start: 20210718, end: 20210920
  21. BACTRIM [Concomitant]
     Active Substance: SULFAMETHOXAZOLE\TRIMETHOPRIM
     Dosage: UNK
     Dates: start: 20210718
  22. BUMETANIDE [Concomitant]
     Active Substance: BUMETANIDE
     Dosage: UNK
     Dates: start: 20210806, end: 20210808
  23. CALCIUM ACETATE;MAGNESIUM CARBONATE [Concomitant]
     Dosage: UNK
     Dates: start: 20210807, end: 20210809
  24. ENOXAPARIN SODIUM [Concomitant]
     Active Substance: ENOXAPARIN SODIUM
     Dosage: UNK
     Dates: start: 20210719, end: 20210729
  25. COLCHICINE [Concomitant]
     Active Substance: COLCHICINE
     Dosage: UNK
     Dates: start: 20210712, end: 20210804
  26. DAFALGAN [Concomitant]
     Active Substance: ACETAMINOPHEN
     Dosage: UNK
     Dates: start: 20210718, end: 20210804
  27. DEXAMETHASONE [Concomitant]
     Active Substance: DEXAMETHASONE
     Dosage: UNK
     Dates: start: 20210804, end: 20210917
  28. DEXERYL [CHLORPHENAMINE MALEATE;DEXTROMETHORPHAN HYDROBROMIDE;GUAIFENE [Concomitant]
     Dosage: UNK
     Dates: start: 20210810, end: 20210813
  29. CHOLECALCIFEROL [Concomitant]
     Active Substance: CHOLECALCIFEROL
     Dosage: UNK
     Dates: start: 20210718
  30. ESOMEPRAZOLE [Concomitant]
     Active Substance: ESOMEPRAZOLE
     Dosage: UNK
     Dates: start: 20210718
  31. FASTURTEC [Concomitant]
     Active Substance: RASBURICASE
     Dosage: UNK
     Dates: start: 20210804, end: 20210812
  32. FLUCONAZOLE [Concomitant]
     Active Substance: FLUCONAZOLE
     Dosage: UNK
     Dates: start: 20210804, end: 20211004
  33. FLUCONAZOLE [Concomitant]
     Active Substance: FLUCONAZOLE
     Dosage: UNK
     Dates: start: 20210804
  34. INSULIN HUMAN [Concomitant]
     Active Substance: INSULIN HUMAN
     Dosage: UNK
     Dates: start: 20210805, end: 20210809
  35. LASIX [Concomitant]
     Active Substance: FUROSEMIDE
     Dosage: UNK
     Dates: start: 20210805, end: 20210811
  36. FUROSEMIDE [Concomitant]
     Active Substance: FUROSEMIDE
     Dosage: UNK
     Dates: start: 20210805, end: 20210811
  37. ALIZAPRIDE [Concomitant]
     Active Substance: ALIZAPRIDE
     Dosage: UNK
     Dates: start: 20210804, end: 20210804
  38. LIPEGFILGRASTIM [Concomitant]
     Active Substance: LIPEGFILGRASTIM
     Dosage: UNK
     Dates: start: 20210805, end: 20210805
  39. MEDROL [Concomitant]
     Active Substance: METHYLPREDNISOLONE
     Dosage: 80 MG
     Route: 048
     Dates: start: 20210812, end: 202108
  40. MONOFREE DEXAMETHASON [DEXAMETHASONE] [Concomitant]
     Dosage: 0.4 ML
     Dates: start: 20210804
  41. MONOPRONT [Concomitant]
     Dosage: UNK
     Dates: start: 20210719, end: 20210916
  42. LATANOPROST [Concomitant]
     Active Substance: LATANOPROST
     Dosage: UNK
     Dates: start: 20210719, end: 20210916
  43. MOVICOL [Concomitant]
     Active Substance: POLYETHYLENE GLYCOL 3350\POTASSIUM CHLORIDE\SODIUM BICARBONATE\SODIUM CHLORIDE
     Dosage: UNK
     Dates: start: 20210810, end: 20210827
  44. MOVICOL [Concomitant]
     Active Substance: POLYETHYLENE GLYCOL 3350\POTASSIUM CHLORIDE\SODIUM BICARBONATE\SODIUM CHLORIDE
     Dosage: UNK
     Dates: start: 20210810
  45. MOXONIDINE [Concomitant]
     Active Substance: MOXONIDINE
     Dosage: UNK
     Dates: start: 20210719, end: 20210827
  46. OMEPRAZOLE [Concomitant]
     Active Substance: DONEPEZIL HYDROCHLORIDE\OMEPRAZOLE\OMEPRAZOLE MAGNESIUM
     Dosage: UNK
     Dates: start: 20210719
  47. ONDANSETRON [Concomitant]
     Active Substance: ONDANSETRON
     Dosage: UNK
     Dates: start: 20210804
  48. ACETAMINOPHEN [Concomitant]
     Active Substance: ACETAMINOPHEN
     Dosage: 1 G
     Route: 048
     Dates: start: 20210811, end: 20210811
  49. ACETAMINOPHEN [Concomitant]
     Active Substance: ACETAMINOPHEN
     Dosage: 1 G
     Route: 048
     Dates: start: 20210811, end: 20210819
  50. PIPERACILLIN AND TAZOBACTAM [Concomitant]
     Active Substance: PIPERACILLIN SODIUM\TAZOBACTAM SODIUM
     Dosage: UNK
     Dates: start: 20210816, end: 20210819
  51. AMITRIPTYLINE HYDROCHLORIDE [Concomitant]
     Active Substance: AMITRIPTYLINE HYDROCHLORIDE
     Dosage: UNK
     Dates: start: 20210729, end: 20210927
  52. RENEPHO [Concomitant]
     Dosage: UNK
     Dates: start: 20210807, end: 20210809
  53. SOLU-MEDROL [Concomitant]
     Active Substance: METHYLPREDNISOLONE SODIUM SUCCINATE
     Indication: Prophylaxis
     Dosage: 80 MG
     Route: 042
     Dates: start: 20210811, end: 20210811
  54. SOLU-MEDROL [Concomitant]
     Active Substance: METHYLPREDNISOLONE SODIUM SUCCINATE
     Dosage: 80 MG
     Route: 042
     Dates: start: 20210811, end: 20210822
  55. SOLU-MEDROL [Concomitant]
     Active Substance: METHYLPREDNISOLONE SODIUM SUCCINATE
     Dosage: 80 MG
     Route: 048
     Dates: start: 20210821, end: 20210822
  56. SOLU-MEDROL [Concomitant]
     Active Substance: METHYLPREDNISOLONE SODIUM SUCCINATE
     Dosage: 125 MG
     Route: 042
     Dates: start: 20210819, end: 20210821
  57. SOLU-MEDROL [Concomitant]
     Active Substance: METHYLPREDNISOLONE SODIUM SUCCINATE
     Dosage: 125 MG (125 UNK)
     Dates: start: 20210819, end: 20210820
  58. CLEMASTINE FUMARATE [Concomitant]
     Active Substance: CLEMASTINE FUMARATE
     Dosage: 2 MG
     Route: 042
     Dates: start: 20210811, end: 20210811
  59. CLEMASTINE FUMARATE [Concomitant]
     Active Substance: CLEMASTINE FUMARATE
     Dosage: UNK
     Dates: start: 20210819
  60. CLEMASTINE FUMARATE [Concomitant]
     Active Substance: CLEMASTINE FUMARATE
     Dosage: 2 MG
     Route: 042
     Dates: start: 20210811, end: 20210819
  61. LORAZEPAM [Concomitant]
     Active Substance: LORAZEPAM
     Dosage: UNK
     Dates: start: 20210804, end: 20210804
  62. FILGRASTIM [Concomitant]
     Active Substance: FILGRASTIM
     Dosage: UNK
     Dates: start: 20210726, end: 20210804
  63. HYALURONATE SODIUM\TREHALOSE [Concomitant]
     Active Substance: HYALURONATE SODIUM\TREHALOSE
     Dosage: UNK
     Dates: start: 20210804, end: 20210917
  64. HYALURONATE SODIUM\TREHALOSE [Concomitant]
     Active Substance: HYALURONATE SODIUM\TREHALOSE
     Dosage: UNK
     Dates: start: 20210804
  65. TRAMADOL HYDROCHLORIDE [Concomitant]
     Active Substance: TRAMADOL HYDROCHLORIDE
     Indication: Cholecystitis
     Dosage: UNK
     Dates: start: 20210718, end: 20211029
  66. TRAMADOL HYDROCHLORIDE [Concomitant]
     Active Substance: TRAMADOL HYDROCHLORIDE
     Dosage: UNK
     Dates: start: 20210718
  67. VITAMIN A PALMITATE [Concomitant]
     Active Substance: VITAMIN A PALMITATE
     Dosage: UNK
     Dates: start: 20210805, end: 20210916
  68. VITAMIN A PALMITATE [Concomitant]
     Active Substance: VITAMIN A PALMITATE
     Dosage: UNK
     Dates: start: 20210805
  69. XALATAN [Concomitant]
     Active Substance: LATANOPROST
     Dosage: 0.005 %
     Dates: start: 20210718
  70. ZOFRAN [Concomitant]
     Active Substance: ONDANSETRON HYDROCHLORIDE
     Dosage: UNK
     Dates: start: 20210808, end: 20210810

REACTIONS (6)
  - Heart failure with reduced ejection fraction [Recovered/Resolved]
  - Acute kidney injury [Recovered/Resolved]
  - Cardiac failure [Recovered/Resolved]
  - Coronary artery disease [Recovered/Resolved]
  - Periodontitis [Recovered/Resolved]
  - Off label use [Unknown]

NARRATIVE: CASE EVENT DATE: 20210807
